FAERS Safety Report 9013774 (Version 3)
Quarter: 2013Q1

REPORT INFORMATION
  Report Type: Spontaneous
  Country: GB (occurrence: None)
  Receive Date: 20121231
  Receipt Date: 20130322
  Transmission Date: 20140127
  Serious: Yes (Hospitalization)
  Sender: FDA-Public Use
  Company Number: GB-JNJFOC-20121208568

PATIENT
  Age: 74 Year
  Sex: Male
  Weight: 78.8 kg

DRUGS (11)
  1. DECITABINE [Suspect]
     Indication: MYELODYSPLASTIC SYNDROME
     Route: 042
     Dates: start: 20120103
  2. GLICLAZIDE (GLICLAZIDE) TABLETS [Concomitant]
  3. LACTULOSE SOLUTION (LACTULOSE) SOLUTION [Concomitant]
  4. CHLORHEXIDINE GLUCONATE (CHLORHEXIDINE GLUCONATE) [Concomitant]
  5. OMEPRAZOLE (OMEPRAZOLE) CAPSULES [Concomitant]
  6. NYSTATIN (NYSTATIN) SUSPENSION [Concomitant]
  7. SIMVASTATIN (SIMVASTATIN) TABLETS [Concomitant]
  8. PROCTOSEDYL (PROCTOSEDYL) SUPPOSITORY [Concomitant]
  9. FORTISIPS (FORTISIP) [Concomitant]
  10. GAVISCON ADVANCE (GAVISCON ADVANCE) [Concomitant]
  11. ONDANSETRON (ONDANSETRON) CAPSULE [Concomitant]

REACTIONS (3)
  - Pericardial effusion [None]
  - Pleural effusion [None]
  - Pericarditis [None]
